FAERS Safety Report 10966211 (Version 1)
Quarter: 2015Q1

REPORT INFORMATION
  Report Type: Spontaneous
  Country: US (occurrence: US)
  Receive Date: 20150330
  Receipt Date: 20150330
  Transmission Date: 20150721
  Serious: No
  Sender: FDA-Public Use
  Company Number: US-MYLANLABS-2014S1008983

PATIENT
  Age: 60 Year
  Sex: Male
  Weight: 113.4 kg

DRUGS (1)
  1. FENTANYL TRANSDERMAL SYSTEM [Suspect]
     Active Substance: FENTANYL
     Indication: PAIN
     Dosage: 100 ?G,QH
     Route: 062
     Dates: start: 201404

REACTIONS (1)
  - Application site ulcer [Not Recovered/Not Resolved]

NARRATIVE: CASE EVENT DATE: 20140416
